FAERS Safety Report 4558814-3 (Version None)
Quarter: 2005Q1

REPORT INFORMATION
  Report Type: 
  Country: None (occurrence: None)
  Receive Date: 20050121
  Receipt Date: 20050110
  Transmission Date: 20050727
  Serious: Yes (Life-Threatening, Hospitalization, Other)
  Sender: FDA-Public Use
  Company Number: ZA-GLAXOSMITHKLINE-B0364546A

PATIENT
  Age: 23 Year
  Sex: Female
  Weight: 65 kg

DRUGS (2)
  1. COMBIVIR [Suspect]
     Dosage: 1TAB TWICE PER DAY
     Route: 048
     Dates: start: 20040121, end: 20040413
  2. RIFAFOUR [Suspect]
     Indication: LYMPH NODE TUBERCULOSIS
     Dosage: 4TAB PER DAY
     Route: 048
     Dates: start: 20040101, end: 20040801

REACTIONS (9)
  - ANAEMIA [None]
  - APLASIA PURE RED CELL [None]
  - BONE MARROW DEPRESSION [None]
  - CARDIAC FAILURE [None]
  - DYSPNOEA [None]
  - FATIGUE [None]
  - LETHARGY [None]
  - PANCYTOPENIA [None]
  - TACHYCARDIA [None]
